FAERS Safety Report 8372634-3 (Version None)
Quarter: 2012Q2

REPORT INFORMATION
  Report Type: 
  Country: None (occurrence: None)
  Receive Date: 20120521
  Receipt Date: 20120515
  Transmission Date: 20120825
  Serious: Yes (Other)
  Sender: FDA-Public Use
  Company Number: PHHY2012MX032569

PATIENT
  Sex: Female

DRUGS (6)
  1. FOSAMAX [Concomitant]
     Indication: OSTEOPENIA
     Dosage: 1 DF, DAILY
     Dates: start: 20120321
  2. PROGESTERONE [Concomitant]
     Indication: MENOPAUSE
     Dosage: 1 DF, DAILY
  3. LEVOTHYROXINE SODIUM [Concomitant]
     Indication: HYPOTHYROIDISM
     Dosage: 75 UG, DAILY
  4. ZOLEDRONOC ACID [Suspect]
     Indication: OSTEOPOROSIS
     Dosage: 5 MG/100 ML, ONCE A YEAR
     Route: 042
     Dates: start: 20110415
  5. NOVOVARTALON [Concomitant]
     Indication: ARTHRALGIA
  6. PREMARIN [Concomitant]
     Indication: MENOPAUSE
     Dosage: 0.625 MG, DAILY

REACTIONS (5)
  - HYPERSENSITIVITY [None]
  - CALCIUM DEFICIENCY [None]
  - VITAMIN D DECREASED [None]
  - RHEUMATOID ARTHRITIS [None]
  - GAIT DISTURBANCE [None]
